FAERS Safety Report 12054845 (Version 1)
Quarter: 2016Q1

REPORT INFORMATION
  Report Type: Report from Study
  Country: US (occurrence: US)
  Receive Date: 20160209
  Receipt Date: 20160209
  Transmission Date: 20160526
  Serious: No
  Sender: FDA-Public Use
  Company Number: US-ABBVIE-15P-163-1460205-00

PATIENT
  Sex: Female

DRUGS (1)
  1. HUMIRA [Suspect]
     Active Substance: ADALIMUMAB
     Indication: COLITIS ULCERATIVE
     Dosage: BIWEEKLY
     Route: 058
     Dates: start: 20150807

REACTIONS (4)
  - Rash generalised [Recovered/Resolved]
  - Sinus congestion [Recovering/Resolving]
  - Nasal discharge discolouration [Unknown]
  - Hypersensitivity [Unknown]
